FAERS Safety Report 5518359-0 (Version None)
Quarter: 2007Q4

REPORT INFORMATION
  Report Type: 
  Country: None (occurrence: None)
  Receive Date: 20071115
  Receipt Date: 20071108
  Transmission Date: 20080405
  Serious: Yes (Other)
  Sender: FDA-Public Use
  Company Number: PHFR2004GB04263

PATIENT
  Age: 23 Year
  Sex: Male

DRUGS (7)
  1. CLOZARIL [Suspect]
     Indication: SCHIZOPHRENIA
     Dosage: 25MG-300MG
     Route: 048
     Dates: start: 20000907, end: 20041118
  2. CLOZARIL [Suspect]
     Dosage: 6X100MG/OVERDOSE
     Dates: start: 20041101
  3. CLOZARIL [Suspect]
     Dosage: 450MG/DAY
     Route: 048
     Dates: start: 20070522, end: 20071025
  4. CLOZARIL [Suspect]
     Route: 048
     Dates: start: 20060911, end: 20061102
  5. CLOZARIL [Suspect]
     Dosage: 500 MG/DAY
     Route: 048
     Dates: start: 20071031
  6. RISPERIDONE [Concomitant]
  7. ATENOLOL [Concomitant]
     Route: 065

REACTIONS (16)
  - ABDOMINAL TENDERNESS [None]
  - ANOREXIA [None]
  - ARRHYTHMIA [None]
  - BLOOD PRESSURE DECREASED [None]
  - BLOOD PRESSURE INCREASED [None]
  - BUNDLE BRANCH BLOCK RIGHT [None]
  - HEART RATE INCREASED [None]
  - NAUSEA [None]
  - OVERDOSE [None]
  - PALPITATIONS [None]
  - RIGHT VENTRICULAR HYPERTROPHY [None]
  - SINUS TACHYCARDIA [None]
  - SOMNOLENCE [None]
  - TACHYCARDIA [None]
  - TREATMENT NONCOMPLIANCE [None]
  - VOMITING [None]
